FAERS Safety Report 6446490-4 (Version None)
Quarter: 2009Q4

REPORT INFORMATION
  Report Type: 
  Country: None (occurrence: None)
  Receive Date: 20091119
  Receipt Date: 20091113
  Transmission Date: 20100525
  Serious: Yes (Other)
  Sender: FDA-Public Use
  Company Number: US-B.I. PHARMACEUTICALS,INC./RIDGEFIELD-2009-BP-13220BP

PATIENT
  Age: 78 Year
  Sex: Male

DRUGS (2)
  1. FLOMAX [Suspect]
     Indication: BENIGN PROSTATIC HYPERPLASIA
     Dosage: 0.4 MG
     Route: 048
     Dates: start: 20080101, end: 20080101
  2. FLOMAX [Suspect]
     Dosage: 0.4 MG
     Route: 048
     Dates: start: 20091111, end: 20091111

REACTIONS (6)
  - ABDOMINAL DISCOMFORT [None]
  - ABDOMINAL PAIN UPPER [None]
  - COLD SWEAT [None]
  - HYPOTENSION [None]
  - INTESTINAL OBSTRUCTION [None]
  - NAUSEA [None]
